FAERS Safety Report 15855132 (Version 1)
Quarter: 2019Q1

REPORT INFORMATION
  Report Type: Spontaneous
  Country: US (occurrence: US)
  Receive Date: 20190122
  Receipt Date: 20190122
  Transmission Date: 20190417
  Serious: No
  Sender: FDA-Public Use
  Company Number: US-ALLERGAN-1773419US

PATIENT
  Age: 90 Year
  Sex: Female

DRUGS (1)
  1. MONUROL [Suspect]
     Active Substance: FOSFOMYCIN TROMETHAMINE
     Indication: URINARY TRACT INFECTION
     Dosage: 3 DF, UNK
     Route: 048
     Dates: start: 2016, end: 2016

REACTIONS (2)
  - Haematuria [Recovered/Resolved]
  - Off label use [Unknown]
